FAERS Safety Report 19452489 (Version 1)
Quarter: 2021Q2

REPORT INFORMATION
  Report Type: Report from Study
  Country: US (occurrence: US)
  Receive Date: 20210623
  Receipt Date: 20210623
  Transmission Date: 20210717
  Serious: Yes (Other)
  Sender: FDA-Public Use
  Company Number: US-SUN PHARMACEUTICAL INDUSTRIES LTD-2021R1-300657

PATIENT

DRUGS (1)
  1. HALOBETASOL [Suspect]
     Active Substance: HALOBETASOL PROPIONATE
     Indication: PSORIASIS
     Dosage: 50 GRAM, BID
     Route: 061

REACTIONS (1)
  - ACTH stimulation test abnormal [Unknown]
